FAERS Safety Report 6528700-8 (Version None)
Quarter: 2009Q4

REPORT INFORMATION
  Report Type: 
  Country: None (occurrence: None)
  Receive Date: 20091224
  Receipt Date: 20091211
  Transmission Date: 20100525
  Serious: Yes (Hospitalization)
  Sender: FDA-Public Use
  Company Number: WAES 0912USA02776

PATIENT
  Age: 68 Year
  Sex: Male

DRUGS (4)
  1. PRINIVIL [Suspect]
     Dosage: PO
     Route: 048
     Dates: start: 20070101, end: 20091123
  2. APIXABAN UNK [Suspect]
     Indication: THROMBOSIS PROPHYLAXIS
     Dosage: 2.5 MG/DAILY/PO
     Route: 048
     Dates: start: 20090909, end: 20091007
  3. ADVAIR DISKUS 100/50 [Concomitant]
  4. METFORMIN HYDROCHLORIDE [Concomitant]

REACTIONS (8)
  - ANGIOEDEMA [None]
  - DYSARTHRIA [None]
  - DYSPHAGIA [None]
  - HAEMOGLOBIN DECREASED [None]
  - INFLAMMATION [None]
  - PALATAL OEDEMA [None]
  - TONGUE DISORDER [None]
  - URTICARIA [None]
